FAERS Safety Report 14200384 (Version 9)
Quarter: 2019Q1

REPORT INFORMATION
  Report Type: Spontaneous
  Country: GB (occurrence: GB)
  Receive Date: 20171117
  Receipt Date: 20190131
  Transmission Date: 20190417
  Serious: Yes (Death, Hospitalization, Other)
  Sender: FDA-Public Use
  Company Number: GB-PFIZER INC-2017491615

PATIENT
  Age: 59 Year
  Sex: Male

DRUGS (5)
  1. METHOTREXATE SODIUM. [Suspect]
     Active Substance: METHOTREXATE SODIUM
     Indication: PSORIATIC ARTHROPATHY
  2. AVANDAMET [Concomitant]
     Active Substance: METFORMIN HYDROCHLORIDE\ROSIGLITAZONE MALEATE
     Indication: DIABETES MELLITUS
     Dosage: 2 MG, 2X/DAY
     Dates: start: 20060502, end: 201101
  3. COMPETACT [Concomitant]
     Active Substance: METFORMIN HYDROCHLORIDE\PIOGLITAZONE HYDROCHLORIDE
     Indication: DIABETES MELLITUS
     Dosage: UNK
     Dates: start: 20110118
  4. METHOTREXATE SODIUM. [Suspect]
     Active Substance: METHOTREXATE SODIUM
     Indication: PSORIASIS
     Dosage: 20 MG, WEEKLY
     Route: 048
     Dates: start: 200411, end: 201505
  5. COMPETACT [Concomitant]
     Active Substance: METFORMIN HYDROCHLORIDE\PIOGLITAZONE HYDROCHLORIDE
     Dosage: UNK
     Dates: end: 201505

REACTIONS (43)
  - Bone marrow failure [Fatal]
  - Osteomyelitis [Fatal]
  - Gastrointestinal haemorrhage [Fatal]
  - Hepatic encephalopathy [Fatal]
  - Bedridden [Unknown]
  - Groin pain [Unknown]
  - Erythema [Unknown]
  - Cognitive disorder [Unknown]
  - Nodular regenerative hyperplasia [Fatal]
  - Skin infection [Unknown]
  - Pulmonary fibrosis [Unknown]
  - Mouth ulceration [Unknown]
  - Portal hypertension [Fatal]
  - Platelet count decreased [Fatal]
  - Anaemia [Fatal]
  - Weight increased [Unknown]
  - General physical health deterioration [Unknown]
  - Fatigue [Unknown]
  - Kidney infection [Fatal]
  - Hepatic fibrosis [Unknown]
  - Mobility decreased [Unknown]
  - Photosensitivity reaction [Unknown]
  - Fluid retention [Unknown]
  - Hepatic failure [Fatal]
  - Sepsis [Fatal]
  - Oesophageal varices haemorrhage [Fatal]
  - Haemorrhage [Fatal]
  - Body temperature increased [Unknown]
  - Unresponsive to stimuli [Unknown]
  - Decubitus ulcer [Unknown]
  - Infection [Unknown]
  - Nasopharyngitis [Unknown]
  - Wheezing [Unknown]
  - Pneumonia [Fatal]
  - Dyspnoea [Unknown]
  - Cough [Unknown]
  - Urinary tract infection [Unknown]
  - Swelling [Unknown]
  - Infection [Unknown]
  - Influenza [Unknown]
  - Intertrigo [Unknown]
  - Hypersensitivity [Unknown]
  - Abscess [Unknown]

NARRATIVE: CASE EVENT DATE: 2006
